FAERS Safety Report 25598125 (Version 3)
Quarter: 2025Q3

REPORT INFORMATION
  Report Type: Spontaneous
  Country: GB (occurrence: GB)
  Receive Date: 20250723
  Receipt Date: 20250825
  Transmission Date: 20251021
  Serious: Yes (Hospitalization, Other)
  Sender: MYLAN
  Company Number: GB-MYLANLABS-2025M1059092

PATIENT
  Age: 53 Year
  Sex: Female

DRUGS (3)
  1. CLOZARIL [Suspect]
     Active Substance: CLOZAPINE
     Indication: Schizophrenia
  2. CLOZARIL [Suspect]
     Active Substance: CLOZAPINE
     Dosage: UNK, BID (TITRATION)
     Dates: start: 20250623, end: 20250704
  3. CLOZARIL [Suspect]
     Active Substance: CLOZAPINE
     Dates: start: 20250715, end: 20250813

REACTIONS (4)
  - Sepsis [Recovered/Resolved]
  - Urinary tract infection [Recovered/Resolved]
  - Eosinophilia [Unknown]
  - Tachycardia [Unknown]

NARRATIVE: CASE EVENT DATE: 20250705
